FAERS Safety Report 14257457 (Version 1)
Quarter: 2017Q4

REPORT INFORMATION
  Report Type: Spontaneous
  Country: TR (occurrence: TR)
  Receive Date: 20171207
  Receipt Date: 20171207
  Transmission Date: 20180321
  Serious: Yes (Hospitalization, Other)
  Sender: FDA-Public Use
  Company Number: TR-VISTAPHARM, INC.-VER201711-001224

PATIENT
  Age: 14 Year
  Sex: Female

DRUGS (1)
  1. PHENYTOIN. [Suspect]
     Active Substance: PHENYTOIN
     Indication: EPILEPSY

REACTIONS (2)
  - Rash maculo-papular [Recovering/Resolving]
  - Acute generalised exanthematous pustulosis [Recovering/Resolving]
